FAERS Safety Report 4677149-1 (Version None)
Quarter: 2005Q2

REPORT INFORMATION
  Report Type: 
  Country: None (occurrence: None)
  Receive Date: 20050525
  Receipt Date: 20050525
  Transmission Date: 20051028
  Serious: No
  Sender: FDA-Public Use
  Company Number: None

PATIENT
  Sex: Male
  Weight: 53.978 kg

DRUGS (1)
  1. INTERERFERON-ALPHA [Suspect]
     Dosage: 9.0 MU SC 3X WEEK. CYCLE = 4 WEEKS
     Route: 058
     Dates: start: 20050323

REACTIONS (3)
  - FIBRIN D DIMER INCREASED [None]
  - LOSS OF CONSCIOUSNESS [None]
  - SYNCOPE [None]
